FAERS Safety Report 8159729-4 (Version None)
Quarter: 2012Q1

REPORT INFORMATION
  Report Type: 
  Country: None (occurrence: None)
  Receive Date: 20120223
  Receipt Date: 20120215
  Transmission Date: 20120608
  Serious: Yes (Other)
  Sender: FDA-Public Use
  Company Number: CA-ROCHE-GNE312999

PATIENT
  Sex: Female
  Weight: 84 kg

DRUGS (9)
  1. XOLAIR [Suspect]
     Dosage: 150 MG, 1/MONTH
     Route: 058
     Dates: start: 20100225
  2. XOLAIR [Suspect]
     Dosage: 150 MG, Q2W
     Dates: start: 20091203
  3. CLARITHROMYCIN [Concomitant]
     Indication: PRODUCT USED FOR UNKNOWN INDICATION
  4. ALBUTEROL SULFATE AUTOHALER [Concomitant]
     Indication: PRODUCT USED FOR UNKNOWN INDICATION
     Dosage: 100 A?G, UNK
  5. OXEZE [Concomitant]
     Indication: PRODUCT USED FOR UNKNOWN INDICATION
     Dosage: 12 A?G, UNK
  6. FLUTICASONE FUROATE [Concomitant]
     Indication: PRODUCT USED FOR UNKNOWN INDICATION
     Dosage: SPRAY
  7. XOLAIR [Suspect]
     Indication: ASTHMA
     Dosage: 150 MG, 1/MONTH
     Route: 058
     Dates: start: 20070920
  8. PULMICORT-100 [Concomitant]
     Indication: PRODUCT USED FOR UNKNOWN INDICATION
  9. CYCLOKAPRON [Concomitant]
     Indication: PRODUCT USED FOR UNKNOWN INDICATION

REACTIONS (16)
  - FOOD POISONING [None]
  - CONTUSION [None]
  - FATIGUE [None]
  - HAEMOGLOBIN DECREASED [None]
  - BRONCHITIS [None]
  - CHEST DISCOMFORT [None]
  - NASOPHARYNGITIS [None]
  - VAGINAL HAEMORRHAGE [None]
  - INFLUENZA [None]
  - MALAISE [None]
  - VOMITING [None]
  - NASAL CONGESTION [None]
  - ASTHMA [None]
  - DIARRHOEA [None]
  - CHEST PAIN [None]
  - COUGH [None]
